FAERS Safety Report 5990664-3 (Version None)
Quarter: 2008Q4

REPORT INFORMATION
  Report Type: 
  Country: None (occurrence: None)
  Receive Date: 20081211
  Receipt Date: 20081201
  Transmission Date: 20090506
  Serious: Yes (Other)
  Sender: FDA-Public Use
  Company Number: PHHY2008BR30628

PATIENT
  Age: 75 Year
  Sex: Female

DRUGS (1)
  1. DIOCOMB SI [Suspect]
     Indication: HYPERTENSION
     Dosage: 1 TAB MORNING AND NIGHT

REACTIONS (1)
  - CARDIAC DISORDER [None]
